FAERS Safety Report 7500462-7 (Version None)
Quarter: 2011Q2

REPORT INFORMATION
  Report Type: 
  Country: None (occurrence: None)
  Receive Date: 20110524
  Receipt Date: 20110407
  Transmission Date: 20111010
  Serious: No
  Sender: FDA-Public Use
  Company Number: US-BRISTOL-MYERS SQUIBB COMPANY-15658719

PATIENT
  Age: 86 Year
  Sex: Male

DRUGS (3)
  1. GLIMEPIRIDE [Suspect]
  2. METFORMIN HCL [Suspect]
     Dosage: 1DF:2 TABS
  3. ONGLYZA [Suspect]
     Dates: start: 20110331

REACTIONS (1)
  - BLOOD GLUCOSE INCREASED [None]
